FAERS Safety Report 8429824-0 (Version None)
Quarter: 2012Q2

REPORT INFORMATION
  Report Type: 
  Country: None (occurrence: None)
  Receive Date: 20120612
  Receipt Date: 20120603
  Transmission Date: 20120825
  Serious: Yes (Other)
  Sender: FDA-Public Use
  Company Number: IT-EISAI INC-E3810-05611-SPO-IT

PATIENT
  Age: 47 Year
  Sex: Female

DRUGS (2)
  1. RABEPRAZOLE SODIUM [Suspect]
     Indication: ILL-DEFINED DISORDER
     Dosage: 26 TABLETS AT 20 MG
     Route: 048
     Dates: start: 20120603, end: 20120603
  2. KETOPROFEN [Suspect]
     Indication: ILL-DEFINED DISORDER
     Dosage: 18 TABLETS AT 200 MG
     Route: 048
     Dates: start: 20120603, end: 20120603

REACTIONS (1)
  - SELF INJURIOUS BEHAVIOUR [None]
